FAERS Safety Report 25395897 (Version 2)
Quarter: 2025Q2

REPORT INFORMATION
  Report Type: Spontaneous
  Country: TW (occurrence: TW)
  Receive Date: 20250604
  Receipt Date: 20250611
  Transmission Date: 20250716
  Serious: Yes (Other)
  Sender: MYLAN
  Company Number: TW-MYLANLABS-2025M1046075

PATIENT
  Age: 42 Year
  Sex: Female
  Weight: 51 kg

DRUGS (2)
  1. NEURONTIN [Suspect]
     Active Substance: GABAPENTIN
     Indication: Breast pain
     Dosage: 100 MILLIGRAM, TID (AS NEEDED)
     Dates: start: 20250510
  2. SOMA [Suspect]
     Active Substance: CARISOPRODOL
     Indication: Breast pain
     Dosage: UNK, TID (AS NEEDED)
     Dates: start: 20250510

REACTIONS (3)
  - Pruritus [Recovered/Resolved]
  - Rash erythematous [Recovered/Resolved]
  - Off label use [Unknown]

NARRATIVE: CASE EVENT DATE: 20250510
